FAERS Safety Report 21680085 (Version 1)
Quarter: 2022Q4

REPORT INFORMATION
  Report Type: Spontaneous
  Country: US (occurrence: US)
  Receive Date: 20221205
  Receipt Date: 20221205
  Transmission Date: 20230113
  Serious: No
  Sender: FDA-Public Use
  Company Number: US-TAKEDA-2022TUS089875

PATIENT
  Sex: Female

DRUGS (4)
  1. ENTYVIO [Suspect]
     Active Substance: VEDOLIZUMAB
     Indication: Crohn^s disease
     Dosage: UNK
     Route: 042
     Dates: start: 20220812
  2. TRULANCE [Concomitant]
     Active Substance: PLECANATIDE
     Dosage: UNK UNK, QD
     Route: 065
  3. MIRALAX [Concomitant]
     Active Substance: POLYETHYLENE GLYCOL 3350
     Dosage: UNK UNK, QD
     Route: 065
  4. DIZOCILPINE [Concomitant]
     Indication: Muscle spasms
     Dosage: UNK
     Route: 065

REACTIONS (3)
  - Nodule [Unknown]
  - Rash [Unknown]
  - Therapeutic response shortened [Unknown]
